FAERS Safety Report 7702942-8 (Version None)
Quarter: 2011Q3

REPORT INFORMATION
  Report Type: 
  Country: None (occurrence: None)
  Receive Date: 20110823
  Receipt Date: 20110810
  Transmission Date: 20111222
  Serious: Yes (Hospitalization)
  Sender: FDA-Public Use
  Company Number: PHHY2010JP59817

PATIENT
  Sex: Male

DRUGS (12)
  1. MUCODYNE [Concomitant]
     Dosage: 1000 MG, UNK
     Route: 048
     Dates: start: 20100410
  2. TASIGNA [Suspect]
     Indication: CHRONIC MYELOID LEUKAEMIA
     Dosage: 800 MG, DAILY
     Route: 048
     Dates: start: 20100410
  3. THEO-DUR [Concomitant]
     Dosage: 600 MG, UNK
     Dates: start: 20100410
  4. ALLOPURINOL [Concomitant]
     Dosage: 200 MG, UNK
     Route: 048
     Dates: start: 20100410
  5. SOLANTAL [Concomitant]
     Dosage: 100 MG, UNK
     Route: 048
     Dates: start: 20101113, end: 20101210
  6. FAMOTIDINE [Concomitant]
     Indication: PROPHYLAXIS
     Dosage: 40 MG, UNK
     Route: 048
     Dates: start: 20100410
  7. PREDNISOLONE [Concomitant]
     Dosage: 5 MG, UNK
     Route: 048
     Dates: start: 20100410
  8. URINORM [Concomitant]
     Dosage: 50 MG, UNK
     Route: 048
     Dates: start: 20101015, end: 20101022
  9. ALEISON [Concomitant]
     Dosage: 20 MG, UNK
     Route: 048
     Dates: start: 20100410, end: 20100819
  10. MEPTIN [Concomitant]
     Dosage: 100 ?G, UNK
     Route: 048
     Dates: start: 20100410
  11. ONON [Concomitant]
     Dosage: 450 MG, UNK
     Route: 048
     Dates: start: 20100410
  12. TORSEMIDE [Concomitant]
     Dosage: 8 MG, UNK
     Route: 048
     Dates: start: 20100410

REACTIONS (6)
  - PNEUMONIA [None]
  - BLOOD CREATININE INCREASED [None]
  - HAEMOGLOBIN DECREASED [None]
  - HYPOPHOSPHATAEMIA [None]
  - HAEMATOCRIT DECREASED [None]
  - LIPASE INCREASED [None]
